FAERS Safety Report 9789448 (Version 1)
Quarter: 2013Q4

REPORT INFORMATION
  Report Type: Spontaneous
  Country: GB (occurrence: GB)
  Receive Date: 20131231
  Receipt Date: 20131231
  Transmission Date: 20140711
  Serious: Yes (Disabling, Other)
  Sender: FDA-Public Use
  Company Number: GB-AMGEN-GBRSP2013090996

PATIENT
  Age: 74 Year
  Sex: Female

DRUGS (6)
  1. ENBREL [Suspect]
     Indication: PRODUCT USED FOR UNKNOWN INDICATION
     Dosage: 50 MG, UNK
     Route: 058
     Dates: start: 2007
  2. RALOXIFENE [Concomitant]
     Indication: MENOPAUSE
     Dosage: 60 MG, UNK
     Route: 048
     Dates: start: 2003
  3. ACETYLSALICYLIC ACID [Concomitant]
     Indication: HYPOTHYROIDISM
     Dosage: 1 DF, 1X/DAY
     Route: 048
     Dates: start: 2003
  4. ADCAL                              /00056901/ [Concomitant]
     Indication: HYPOTHYROIDISM
     Dosage: 1 DF, 1X/DAY
     Route: 048
     Dates: start: 2003
  5. THYROXINE [Concomitant]
     Indication: OSTEOPOROSIS
     Dosage: 200 MUG, UNK
     Route: 048
     Dates: start: 1986
  6. FOSAMAX [Concomitant]
     Dosage: 60 MG, WEEKLY
     Route: 048
     Dates: start: 2004

REACTIONS (1)
  - Tendon rupture [Not Recovered/Not Resolved]
